FAERS Safety Report 6244993-9 (Version None)
Quarter: 2009Q2

REPORT INFORMATION
  Report Type: 
  Country: None (occurrence: None)
  Receive Date: 20090623
  Receipt Date: 20090623
  Transmission Date: 20091009
  Serious: No
  Sender: FDA-Public Use
  Company Number: None

PATIENT

DRUGS (3)
  1. ESTRADIOL [Suspect]
     Indication: FEMALE SEXUAL AROUSAL DISORDER
     Dates: start: 20090522, end: 20090618
  2. ESTRADIOL [Suspect]
     Indication: POSTMENOPAUSE
     Dates: start: 20090522, end: 20090618
  3. ESTRADIOL [Suspect]
     Indication: VULVOVAGINAL DRYNESS
     Dates: start: 20090522, end: 20090618

REACTIONS (4)
  - DIZZINESS [None]
  - FATIGUE [None]
  - PRURITUS [None]
  - VAGINAL DISCHARGE [None]
